FAERS Safety Report 8660089 (Version 3)
Quarter: 2015Q1

REPORT INFORMATION
  Report Type: Spontaneous
  Country: US (occurrence: US)
  Receive Date: 20120711
  Receipt Date: 20150113
  Transmission Date: 20150721
  Serious: Yes (Other)
  Sender: FDA-Public Use
  Company Number: US-ASTRAZENECA-2012SE45073

PATIENT
  Age: 840 Month
  Sex: Female
  Weight: 61.2 kg

DRUGS (13)
  1. NEXIUM [Suspect]
     Active Substance: ESOMEPRAZOLE MAGNESIUM
     Indication: DYSPEPSIA
     Route: 048
  2. VITAMIN B12 [Concomitant]
     Active Substance: CYANOCOBALAMIN
     Indication: SUPPLEMENTATION THERAPY
     Route: 048
     Dates: start: 20090210
  3. NEXIUM [Suspect]
     Active Substance: ESOMEPRAZOLE MAGNESIUM
     Indication: DYSPEPSIA
     Route: 048
  4. EVEROLIMUS [Concomitant]
     Active Substance: EVEROLIMUS
     Route: 048
     Dates: start: 20120503
  5. NEXIUM [Suspect]
     Active Substance: ESOMEPRAZOLE MAGNESIUM
     Indication: DYSPEPSIA
     Route: 048
     Dates: start: 2001
  6. NEXIUM [Suspect]
     Active Substance: ESOMEPRAZOLE MAGNESIUM
     Indication: DYSPEPSIA
     Route: 048
     Dates: start: 2001
  7. VIACTIV [Concomitant]
     Active Substance: CALCIUM\VITAMIN D\VITAMIN K5
     Indication: SUPPLEMENTATION THERAPY
     Route: 048
  8. OMEGA OIL [Concomitant]
     Indication: BLOOD CHOLESTEROL ABNORMAL
     Route: 048
     Dates: start: 20110609
  9. CLARITIN OTC [Concomitant]
     Indication: HYPERSENSITIVITY
     Dosage: DAILY PRN
     Route: 048
     Dates: start: 20110513
  10. LIPITOR [Concomitant]
     Active Substance: ATORVASTATIN CALCIUM
     Indication: BLOOD CHOLESTEROL ABNORMAL
     Route: 048
     Dates: start: 20120301
  11. COLACE [Concomitant]
     Active Substance: DOCUSATE SODIUM
     Dosage: 100 MG, THREE TIMES DAILY, PRN
     Route: 048
     Dates: start: 20120518
  12. SYNTHROID [Concomitant]
     Active Substance: LEVOTHYROXINE SODIUM
     Indication: HYPOTHYROIDISM
     Route: 048
  13. TYLENOL [Concomitant]
     Active Substance: ACETAMINOPHEN
     Indication: PAIN
     Dosage: 650 MG, EVERY 6 HOUERS,  PRN RARE
     Route: 048
     Dates: start: 20110513

REACTIONS (6)
  - Gastric disorder [Unknown]
  - Neoplasm malignant [Unknown]
  - Off label use [Unknown]
  - Dyspepsia [Unknown]
  - Renal cancer [Unknown]
  - Blood urine present [Unknown]

NARRATIVE: CASE EVENT DATE: 200807
